FAERS Safety Report 6990243-5 (Version None)
Quarter: 2010Q3

REPORT INFORMATION
  Report Type: 
  Country: None (occurrence: None)
  Receive Date: 20100916
  Receipt Date: 20100510
  Transmission Date: 20110219
  Serious: Yes (Other)
  Sender: FDA-Public Use
  Company Number: US-PFIZER INC-2010059430

PATIENT
  Sex: Female
  Weight: 72.562 kg

DRUGS (6)
  1. LYRICA [Suspect]
     Indication: BACK PAIN
     Dosage: 100 MG, DAILY
     Route: 048
     Dates: start: 20100304, end: 20100507
  2. OXYCONTIN [Concomitant]
     Indication: BONE PAIN
     Dosage: UNK
  3. PREMARIN [Concomitant]
     Dosage: UNK
  4. AMLODIPINE [Concomitant]
     Indication: HERPES VIRUS INFECTION
     Dosage: UNK
  5. ACYCLOVIR [Concomitant]
     Dosage: UNK
  6. FLUOXETINE [Concomitant]
     Dosage: UNK

REACTIONS (9)
  - ABDOMINAL DISCOMFORT [None]
  - DIZZINESS [None]
  - FEELING COLD [None]
  - HOT FLUSH [None]
  - INSOMNIA [None]
  - MENTAL IMPAIRMENT [None]
  - NAUSEA [None]
  - SUICIDAL IDEATION [None]
  - URINARY TRACT INFECTION [None]
